FAERS Safety Report 8321597-5 (Version None)
Quarter: 2012Q2

REPORT INFORMATION
  Report Type: 
  Country: None (occurrence: None)
  Receive Date: 20120430
  Receipt Date: 20120416
  Transmission Date: 20120825
  Serious: Yes (Death)
  Sender: FDA-Public Use
  Company Number: FR-SANOFI-AVENTIS-2012SA026384

PATIENT
  Age: 88 Year
  Sex: Female

DRUGS (5)
  1. GENTAMICIN [Suspect]
     Route: 042
     Dates: start: 20120202, end: 20120206
  2. AMOXICILLIN [Suspect]
     Route: 042
     Dates: start: 20120206, end: 20120209
  3. CEFEPIME HYDROCHLORIDE [Suspect]
     Route: 042
     Dates: start: 20120202, end: 20120207
  4. AMOXICILLIN [Suspect]
     Route: 048
     Dates: start: 20120129, end: 20120205
  5. LASIX [Suspect]
     Route: 065
     Dates: start: 20120131, end: 20120212

REACTIONS (4)
  - CONFUSIONAL STATE [None]
  - RENAL FAILURE ACUTE [None]
  - HYPERKALAEMIA [None]
  - DRUG LEVEL INCREASED [None]
